FAERS Safety Report 8052184-4 (Version None)
Quarter: 2012Q1

REPORT INFORMATION
  Report Type: 
  Country: None (occurrence: None)
  Receive Date: 20120111
  Receipt Date: 20120104
  Transmission Date: 20120608
  Serious: Yes (Hospitalization)
  Sender: FDA-Public Use
  Company Number: 2012SP000675

PATIENT
  Age: 46 Year
  Sex: Female
  Weight: 57 kg

DRUGS (19)
  1. CYCLOSPORINE [Concomitant]
  2. PANTOPRAZOLE [Concomitant]
  3. POTASSIUM CHLORIDE [Concomitant]
  4. MAGNESIUM SULFATE [Concomitant]
  5. SODIUM CHLORIDE INJ [Concomitant]
  6. HYDROMORPHONE HCL [Concomitant]
  7. AMLODIPINE [Concomitant]
  8. MAGNESIUM ELEMENTAL [Concomitant]
  9. PROCHLORPERAZINE [Concomitant]
  10. POSACONAZOLE [Suspect]
     Indication: FUNGAL INFECTION
     Dosage: 300 MG;QID;IV
     Route: 042
     Dates: start: 20111219, end: 20111223
  11. LEVOTHYROXINE SODIUM [Concomitant]
  12. POTASSIUM CHLORIDE [Concomitant]
  13. POSACONAZOLE [Suspect]
     Dosage: 400 MG;BID;PO
     Route: 048
     Dates: start: 20111224
  14. LIDOCAINE HCL VISCOUS [Concomitant]
  15. VALACYCLOVIR [Concomitant]
  16. BETAMETHASONE [Concomitant]
  17. HEPARIN LOCK-FLUSH [Concomitant]
  18. URSODIOL [Concomitant]
  19. ZOPICLONE [Concomitant]

REACTIONS (7)
  - PARAESTHESIA [None]
  - HYPOKALAEMIA [None]
  - MUCOSAL INFLAMMATION [None]
  - RASH [None]
  - HYPOMAGNESAEMIA [None]
  - INFECTION [None]
  - HERPES SIMPLEX [None]
